FAERS Safety Report 7252319-7 (Version None)
Quarter: 2011Q1

REPORT INFORMATION
  Report Type: 
  Country: None (occurrence: None)
  Receive Date: 20110129
  Receipt Date: 20100303
  Transmission Date: 20110831
  Serious: No
  Sender: FDA-Public Use
  Company Number: PR-ABBOTT-10P-131-0620604-00

PATIENT
  Sex: Female

DRUGS (4)
  1. APO-METHOTREXATE [Concomitant]
     Indication: RHEUMATOID ARTHRITIS
     Route: 048
  2. GLUCOTROL [Concomitant]
     Indication: HYPERGLYCAEMIA
     Route: 048
  3. PREDNISONE [Concomitant]
     Indication: RHEUMATOID ARTHRITIS
     Route: 048
  4. HUMIRA [Suspect]
     Indication: RHEUMATOID ARTHRITIS
     Route: 058
     Dates: start: 20090801, end: 20091218

REACTIONS (3)
  - HEPATIC ENZYME INCREASED [None]
  - HEPATIC LESION [None]
  - HEPATIC ENZYME ABNORMAL [None]
